FAERS Safety Report 25511889 (Version 3)
Quarter: 2025Q3

REPORT INFORMATION
  Report Type: Report from Study
  Country: US (occurrence: US)
  Receive Date: 20250703
  Receipt Date: 20250818
  Transmission Date: 20251021
  Serious: Yes (Hospitalization)
  Sender: BridgeBio Pharma
  Company Number: US-BRIDGEBIO-25US000926

PATIENT

DRUGS (1)
  1. ACORAMIDIS [Suspect]
     Active Substance: ACORAMIDIS
     Indication: Amyloidosis
     Route: 065
     Dates: start: 20250303, end: 20250708

REACTIONS (3)
  - Diarrhoea [Unknown]
  - Thrombosis [Unknown]
  - Illness [Unknown]
